FAERS Safety Report 5135771-2 (Version None)
Quarter: 2006Q4

REPORT INFORMATION
  Report Type: 
  Country: None (occurrence: None)
  Receive Date: 20061026
  Receipt Date: 20061023
  Transmission Date: 20070319
  Serious: Yes (Other)
  Sender: FDA-Public Use
  Company Number: FR-BRISTOL-MYERS SQUIBB COMPANY-13554688

PATIENT
  Age: 78 Year
  Sex: Female

DRUGS (1)
  1. HYDROXYCARBAMIDE [Suspect]
     Indication: THROMBOCYTHAEMIA
     Route: 048

REACTIONS (1)
  - DYSPHAGIA [None]
